FAERS Safety Report 8564618-7 (Version None)
Quarter: 2012Q3

REPORT INFORMATION
  Report Type: 
  Country: None (occurrence: None)
  Receive Date: 20120803
  Receipt Date: 20120720
  Transmission Date: 20120928
  Serious: Yes (Hospitalization, Disabling, Other)
  Sender: FDA-Public Use
  Company Number: US-009507513-1205USA02887

PATIENT

DRUGS (1)
  1. FOSAMAX [Suspect]
     Indication: OSTEOPOROSIS
     Dosage: 70 MG, QW
     Route: 048
     Dates: start: 19970101, end: 20070101

REACTIONS (12)
  - COLON CANCER [None]
  - OSTEOPOROSIS [None]
  - FEMUR FRACTURE [None]
  - BREAST OPERATION [None]
  - COLON OPERATION [None]
  - ADVERSE EVENT [None]
  - MENISCUS LESION [None]
  - STRESS FRACTURE [None]
  - LOW TURNOVER OSTEOPATHY [None]
  - IMPAIRED HEALING [None]
  - TOOTH DISORDER [None]
  - RADIUS FRACTURE [None]
